FAERS Safety Report 10780589 (Version 1)
Quarter: 2015Q1

REPORT INFORMATION
  Report Type: Spontaneous
  Country: US (occurrence: None)
  Receive Date: 20150206
  Receipt Date: 20150206
  Transmission Date: 20150721
  Serious: Yes (Hospitalization)
  Sender: FDA-Public Use
  Company Number: None

PATIENT
  Age: 71 Year
  Sex: Female
  Weight: 90.7 kg

DRUGS (20)
  1. CLONIDINE (CATAPRES) [Concomitant]
  2. DILAUDID [Concomitant]
     Active Substance: HYDROMORPHONE HYDROCHLORIDE
  3. HYDROXYZINE (ATARAX) [Concomitant]
  4. IPRATROPIUM-ALBUTEROL (DUO-NEB) [Concomitant]
  5. GABAPENTIN (NEURONTIN) [Concomitant]
  6. SULFAMETHOXAZOLE\TRIMETHOPRIM [Suspect]
     Active Substance: SULFAMETHOXAZOLE\TRIMETHOPRIM
     Indication: URINARY TRACT INFECTION
     Route: 048
     Dates: start: 20140314, end: 20140321
  7. LORAZEPAM (ATIVAN) [Concomitant]
  8. OLOPATADINE (PATANOL) [Concomitant]
  9. TYLENOL [Concomitant]
     Active Substance: ACETAMINOPHEN
  10. DIGOXIN (LANOXIN) [Concomitant]
  11. HYDROMORPHONE HCL (DILAUDID) [Concomitant]
  12. NITROGLYCERIN (NITROSTAT) [Concomitant]
  13. DILTIAZEM (CARDIZEM CD) [Concomitant]
  14. FENTANYL (DURAGESIC) [Concomitant]
  15. MENTHOL-ZINC OXIDE (CALMOSEPTINE) [Concomitant]
  16. ACIDOPHILUS (BACID) [Concomitant]
  17. FUROSEMIDE (LASIX) [Concomitant]
  18. HYDRALAZINE (APRESOLINE) [Concomitant]
  19. HYDROCODONE-ACETAMINOPHEN (NORCO) [Concomitant]
  20. LEVAQUIN [Concomitant]
     Active Substance: LEVOFLOXACIN

REACTIONS (6)
  - Acute kidney injury [None]
  - Abdominal distension [None]
  - Weight increased [None]
  - Dyspnoea [None]
  - Cough [None]
  - Oedema [None]

NARRATIVE: CASE EVENT DATE: 20140331
